FAERS Safety Report 4815508-4 (Version None)
Quarter: 2005Q4

REPORT INFORMATION
  Report Type: 
  Country: None (occurrence: None)
  Receive Date: 20051027
  Receipt Date: 20051021
  Transmission Date: 20060501
  Serious: Yes (Hospitalization)
  Sender: FDA-Public Use
  Company Number: HQWYE697704AUG05

PATIENT
  Age: 77 Year
  Sex: Male

DRUGS (6)
  1. PANTOPRAZOLE SODIUM [Suspect]
     Dosage: 40 MG 1X PER 1 DAY ORAL
     Route: 048
  2. CETORNAN (ORNITHINE OXOGLURATE,) [Suspect]
  3. DOMPERIDONE (DOMPERIDONE,) [Suspect]
     Dosage: 10 MG 1X PER 1 DAY ORAL
     Route: 048
  4. VICTAN (ETHYL LOFLAZEPATE,) [Suspect]
     Dosage: 2 MG 1X PER 1 DAY ORAL
     Route: 048
  5. XELODA [Concomitant]
  6. XELODA [Concomitant]

REACTIONS (7)
  - ANAEMIA [None]
  - ANASTOMOTIC ULCER [None]
  - ANASTOMOTIC ULCER HAEMORRHAGE [None]
  - GASTROOESOPHAGEAL REFLUX DISEASE [None]
  - GENERAL PHYSICAL HEALTH DETERIORATION [None]
  - HAEMATEMESIS [None]
  - MELAENA [None]
